FAERS Safety Report 17063349 (Version 1)
Quarter: 2019Q4

REPORT INFORMATION
  Report Type: Spontaneous
  Country: US (occurrence: US)
  Receive Date: 20191122
  Receipt Date: 20191122
  Transmission Date: 20200122
  Serious: Yes (Other)
  Sender: FDA-Public Use
  Company Number: None

PATIENT
  Age: 53 Year
  Sex: Male
  Weight: 99 kg

DRUGS (2)
  1. GLYXAMBI [Concomitant]
     Active Substance: EMPAGLIFLOZIN\LINAGLIPTIN
  2. QBREXZA [Suspect]
     Active Substance: GLYCOPYRRONIUM TOSYLATE
     Indication: RASH
     Route: 061
     Dates: start: 20191017, end: 20191018

REACTIONS (3)
  - Dry mouth [None]
  - Urinary retention [None]
  - Oropharyngeal pain [None]

NARRATIVE: CASE EVENT DATE: 20191018
